FAERS Safety Report 21874430 (Version 1)
Quarter: 2023Q1

REPORT INFORMATION
  Report Type: Spontaneous
  Country: CA (occurrence: CA)
  Receive Date: 20230117
  Receipt Date: 20230117
  Transmission Date: 20230417
  Serious: Yes (Other)
  Sender: FDA-Public Use
  Company Number: CA-ORGANON-1907CAN011252

PATIENT
  Age: 58 Year
  Sex: Male

DRUGS (35)
  1. ZENHALE [Suspect]
     Active Substance: FORMOTEROL FUMARATE\MOMETASONE FUROATE
     Indication: Product used for unknown indication
     Dosage: 4 DOSAGE FORM, 2 EVERY 1 DAYS
  2. ZENHALE [Suspect]
     Active Substance: FORMOTEROL FUMARATE\MOMETASONE FUROATE
     Dosage: 2 DOSAGE FORM, 2 EVERY 1 DAYS (BID)
  3. ZENHALE [Suspect]
     Active Substance: FORMOTEROL FUMARATE\MOMETASONE FUROATE
     Dosage: DOSAGE FORM: AEROSOL, METERED DOSE, 2 DOSAGE FORM, 2 EVERY 1 DAYS
  4. ZENHALE [Suspect]
     Active Substance: FORMOTEROL FUMARATE\MOMETASONE FUROATE
     Dosage: 3 DOSAGE FORM, 2 EVERY 1 DAYS
     Route: 065
  5. MEPOLIZUMAB [Suspect]
     Active Substance: MEPOLIZUMAB
     Indication: Product used for unknown indication
     Dosage: 100 MILLIGRAM
     Route: 042
  6. MEPOLIZUMAB [Suspect]
     Active Substance: MEPOLIZUMAB
     Indication: Asthma
     Dosage: 100 MILLIGRAM
     Route: 042
  7. MEPOLIZUMAB [Suspect]
     Active Substance: MEPOLIZUMAB
     Dosage: 100 MILLIGRAM
     Route: 042
  8. MEPOLIZUMAB [Suspect]
     Active Substance: MEPOLIZUMAB
     Dosage: 100 MILLIGRAM
     Route: 042
  9. MEPOLIZUMAB [Suspect]
     Active Substance: MEPOLIZUMAB
     Dosage: 100 MILLIGRAM
     Route: 042
  10. MEPOLIZUMAB [Suspect]
     Active Substance: MEPOLIZUMAB
     Dosage: 100 MILLIGRAM
     Route: 042
  11. MEPOLIZUMAB [Suspect]
     Active Substance: MEPOLIZUMAB
     Dosage: 100 MILLIGRAM
     Route: 042
  12. MEPOLIZUMAB [Suspect]
     Active Substance: MEPOLIZUMAB
     Dosage: 100 MILLIGRAM
     Route: 042
  13. MEPOLIZUMAB [Suspect]
     Active Substance: MEPOLIZUMAB
     Dosage: 100 MILLIGRAM
     Route: 042
  14. MEPOLIZUMAB [Suspect]
     Active Substance: MEPOLIZUMAB
     Dosage: 100 MILLIGRAM
     Route: 042
  15. MEPOLIZUMAB [Suspect]
     Active Substance: MEPOLIZUMAB
     Dosage: 100 MILLIGRAM, 1 EVERY 1 MONTH
     Route: 042
  16. MEPOLIZUMAB [Suspect]
     Active Substance: MEPOLIZUMAB
     Dosage: 100 MILLIGRAM
     Route: 042
  17. MEPOLIZUMAB [Suspect]
     Active Substance: MEPOLIZUMAB
     Dosage: 100 MILLIGRAM, 1 EVERY 1 MONTH
     Route: 042
  18. MEPOLIZUMAB [Suspect]
     Active Substance: MEPOLIZUMAB
     Dosage: 100 MILLIGRAM, 1 EVERY 1 MONTH
     Route: 042
  19. MEPOLIZUMAB [Suspect]
     Active Substance: MEPOLIZUMAB
     Dosage: 100 MILLIGRAM
     Route: 042
  20. TIOTROPIUM BROMIDE [Suspect]
     Active Substance: TIOTROPIUM BROMIDE
     Indication: Product used for unknown indication
     Dosage: 2 DOSAGE FORM, 1 EVERY 1 DAYS
  21. VENTOLIN [Suspect]
     Active Substance: ALBUTEROL SULFATE
     Indication: Product used for unknown indication
     Dosage: DOSAGE FORM NOT SPECIFIED
     Route: 065
  22. VENTOLIN [Suspect]
     Active Substance: ALBUTEROL SULFATE
     Indication: Asthma
  23. PREDNISONE [Suspect]
     Active Substance: PREDNISONE
     Indication: Product used for unknown indication
     Dosage: DOSAGE FORM NOT SPECIFIED, 5 MILLIGRAM, 1 EVERY 1 DAYS. DOSAGE FORM NOT SPECIFIED.
     Route: 065
  24. PREDNISONE [Suspect]
     Active Substance: PREDNISONE
     Dosage: UNK
     Route: 065
  25. NEILMED SINUS RINSE [Suspect]
     Active Substance: SODIUM BICARBONATE\SODIUM CHLORIDE
     Indication: Product used for unknown indication
     Dosage: DOSAGE FORM SOLUTION NASAL
     Route: 065
  26. SPIRIVA [Suspect]
     Active Substance: TIOTROPIUM BROMIDE MONOHYDRATE
     Indication: Product used for unknown indication
     Dosage: 2 DOSAGE FORMS,1 EVERY 1 DAYS
  27. SPIRIVA [Suspect]
     Active Substance: TIOTROPIUM BROMIDE MONOHYDRATE
     Dosage: DOSAGE FORM: NOT SPECIFIED, 2 DOSAGE FORMS,1 EVERY 1 DAYS
  28. SPIRIVA [Suspect]
     Active Substance: TIOTROPIUM BROMIDE MONOHYDRATE
     Dosage: DOSAGE FORM: NOT SPECIFIED, 2 DOSAGE FORMS,1 EVERY 1 DAYS
     Route: 065
  29. TERBUTALINE SULFATE [Suspect]
     Active Substance: TERBUTALINE SULFATE
     Indication: Product used for unknown indication
     Dosage: UNK
     Route: 065
  30. PULMICORT TURBUHALER [Suspect]
     Active Substance: BUDESONIDE
     Indication: Product used for unknown indication
     Dosage: DOSAGE FORM: NOT SPECIFIED
  31. PREDNISOLONE [Suspect]
     Active Substance: PREDNISOLONE
     Indication: Product used for unknown indication
     Dosage: DOSAGE FORM NOT SPECFIED, 5 MILLIGRAM, 1 EVERY 2 DAYS
     Route: 065
  32. PREDNISOLONE [Suspect]
     Active Substance: PREDNISOLONE
     Dosage: 5 MILLIGRAM, QD, 1 EVERY 1 DAY
     Route: 065
  33. AZATHIOPRINE SODIUM [Suspect]
     Active Substance: AZATHIOPRINE SODIUM
     Indication: Product used for unknown indication
     Dosage: UNK
     Route: 065
  34. ACTONEL [Concomitant]
     Active Substance: RISEDRONATE SODIUM
     Indication: Product used for unknown indication
     Dosage: 1 EVERY 1 WEEKS. DOSAGE FORM NOT SPECIFIED
     Route: 065
  35. CALCIUM CARBONATE [Concomitant]
     Active Substance: CALCIUM CARBONATE
     Indication: Product used for unknown indication
     Dosage: 2 EVERY 1 DAYS, LIQUID ORAL
     Route: 048

REACTIONS (17)
  - Bronchial obstruction [Not Recovered/Not Resolved]
  - Productive cough [Not Recovered/Not Resolved]
  - Cough [Not Recovered/Not Resolved]
  - Sinusitis [Not Recovered/Not Resolved]
  - Inappropriate schedule of product administration [Not Recovered/Not Resolved]
  - Chest discomfort [Not Recovered/Not Resolved]
  - Dyspnoea [Not Recovered/Not Resolved]
  - Hyperaemia [Not Recovered/Not Resolved]
  - Increased bronchial secretion [Not Recovered/Not Resolved]
  - Nasal congestion [Not Recovered/Not Resolved]
  - Nasal disorder [Not Recovered/Not Resolved]
  - Nasopharyngitis [Not Recovered/Not Resolved]
  - Rhinorrhoea [Not Recovered/Not Resolved]
  - Wheezing [Not Recovered/Not Resolved]
  - Eosinophil count increased [Not Recovered/Not Resolved]
  - Rhinitis [Not Recovered/Not Resolved]
  - Weight decreased [Not Recovered/Not Resolved]
